FAERS Safety Report 5518439-X (Version None)
Quarter: 2007Q4

REPORT INFORMATION
  Report Type: 
  Country: None (occurrence: None)
  Receive Date: 20071115
  Receipt Date: 20071105
  Transmission Date: 20080405
  Serious: Yes (Hospitalization)
  Sender: FDA-Public Use
  Company Number: US-ELI_LILLY_AND_COMPANY-US200711000981

PATIENT
  Age: 91 Year
  Sex: Female

DRUGS (5)
  1. EVISTA [Suspect]
     Dosage: 60 MG, UNK
     Route: 048
     Dates: start: 20070101, end: 20071001
  2. EVISTA [Suspect]
     Dosage: 60 MG, UNK
     Route: 048
     Dates: start: 20071030, end: 20071103
  3. PYRIDIUM [Concomitant]
  4. CALCIUM [Concomitant]
     Route: 048
  5. MAGNESIUM SULFATE [Concomitant]

REACTIONS (7)
  - CHEST PAIN [None]
  - ENDOMETRIAL HYPERTROPHY [None]
  - FOREIGN BODY TRAUMA [None]
  - HYPERTENSION [None]
  - PAIN [None]
  - URINARY TRACT INFECTION [None]
  - VAGINAL HAEMORRHAGE [None]
